FAERS Safety Report 5424205-6 (Version None)
Quarter: 2007Q3

REPORT INFORMATION
  Report Type: 
  Country: None (occurrence: None)
  Receive Date: 20070726
  Receipt Date: 20060905
  Transmission Date: 20080115
  Serious: Yes (Hospitalization)
  Sender: FDA-Public Use
  Company Number: DRON00207000457

PATIENT
  Sex: Male
  Weight: 166.5 kg

DRUGS (9)
  1. DRONABINOL [Suspect]
     Indication: DECREASED APPETITE
     Dosage: SEE IMAGE
     Route: 048
     Dates: start: 19911008
  2. RETROVIR (AZIDOTHYMIDINE) [Concomitant]
  3. ACYCLOVIR [Concomitant]
  4. FLUCONAZOLE [Concomitant]
  5. PENTAMIDINE (PENTAMIDINE) [Concomitant]
  6. MULTIVITAMIN [Concomitant]
  7. HIVID [Concomitant]
  8. DAPSONE [Concomitant]
  9. TAGAMET [Concomitant]

REACTIONS (1)
  - MENINGITIS CRYPTOCOCCAL [None]
